FAERS Safety Report 4643427-5 (Version None)
Quarter: 2005Q2

REPORT INFORMATION
  Report Type: 
  Country: None (occurrence: None)
  Receive Date: 20050420
  Receipt Date: 20050420
  Transmission Date: 20051028
  Serious: Yes (Death)
  Sender: FDA-Public Use
  Company Number: None

PATIENT
  Age: 35 Year
  Sex: Male
  Weight: 95.2554 kg

DRUGS (2)
  1. METHADONE 10 MG MALLINCKRODT [Suspect]
     Indication: PAIN
     Dosage: 1 TABLET 3 TIMES A DAY ORAL
     Route: 048
     Dates: start: 20050101, end: 20050115
  2. PAXIL CR [Suspect]
     Indication: PANIC ATTACK
     Dosage: 1 TABLET ORAL
     Route: 048
     Dates: start: 20010101, end: 20050115

REACTIONS (1)
  - DYSPNOEA [None]
